FAERS Safety Report 13011711 (Version 1)
Quarter: 2016Q4

REPORT INFORMATION
  Report Type: Spontaneous
  Country: US (occurrence: US)
  Receive Date: 20161209
  Receipt Date: 20161209
  Transmission Date: 20170207
  Serious: No
  Sender: FDA-Public Use
  Company Number: US-STRIDES ARCOLAB LIMITED-2016SP016415

PATIENT

DRUGS (4)
  1. TAZOBACTAM [Suspect]
     Active Substance: TAZOBACTAM
     Indication: OSTEOMYELITIS
     Dosage: CEFTOLOZANE-TAZOBACTAM 1.5 G, EVERY 8 HOURS
     Route: 042
  2. CEFTOLOZANE [Suspect]
     Active Substance: CEFTOLOZANE
     Indication: OSTEOMYELITIS
     Dosage: CEFTOLOZANE-TAZOBACTAM 1.5 G, EVERY 8 HOURS
     Route: 042
  3. METRONIDAZOLE. [Suspect]
     Active Substance: METRONIDAZOLE
     Indication: BACTEROIDES INFECTION
     Dosage: 500 MG, EVERY 8 HOURS
     Route: 048
  4. METRONIDAZOLE. [Suspect]
     Active Substance: METRONIDAZOLE
     Indication: OSTEOMYELITIS

REACTIONS (4)
  - Transplant [None]
  - Bacterial test positive [None]
  - Off label use [Unknown]
  - Staphylococcal infection [None]
